FAERS Safety Report 20684921 (Version 3)
Quarter: 2024Q2

REPORT INFORMATION
  Report Type: Spontaneous
  Country: US (occurrence: US)
  Receive Date: 20220407
  Receipt Date: 20240403
  Transmission Date: 20240716
  Serious: Yes (Other)
  Sender: FDA-Public Use
  Company Number: US-PFIZER INC-202200485071

PATIENT
  Age: 84 Year
  Sex: Female

DRUGS (1)
  1. TOVIAZ [Suspect]
     Active Substance: FESOTERODINE FUMARATE
     Indication: Micturition disorder
     Dosage: UNK

REACTIONS (3)
  - Dental operation [Unknown]
  - Bradykinesia [Unknown]
  - Therapeutic product effect incomplete [Unknown]
